FAERS Safety Report 18522902 (Version 1)
Quarter: 2020Q4

REPORT INFORMATION
  Report Type: Spontaneous
  Country: FR (occurrence: FR)
  Receive Date: 20201119
  Receipt Date: 20201119
  Transmission Date: 20210114
  Serious: Yes (Other)
  Sender: FDA-Public Use
  Company Number: FR-MYLANLABS-2020M1095733

PATIENT
  Age: 35 Year
  Sex: Female

DRUGS (3)
  1. ETANERCEPT [Suspect]
     Active Substance: ETANERCEPT
     Indication: PSORIATIC ARTHROPATHY
     Dosage: UNK
     Route: 065
     Dates: start: 201304
  2. METHOTREXATE. [Suspect]
     Active Substance: METHOTREXATE
     Indication: PSORIATIC ARTHROPATHY
     Route: 065
     Dates: end: 200903
  3. ADALIMUMAB [Suspect]
     Active Substance: ADALIMUMAB
     Indication: PSORIATIC ARTHROPATHY
     Dosage: INTERMITTENT THERAPY
     Route: 065
     Dates: start: 200903, end: 201304

REACTIONS (2)
  - Ovarian failure [Recovered/Resolved]
  - Amenorrhoea [Recovered/Resolved]
